FAERS Safety Report 8792489 (Version 1)
Quarter: 2012Q4

REPORT INFORMATION
  Report Type: 
  Country: US (occurrence: US)
  Receive Date: 20120918
  Receipt Date: 20120918
  Transmission Date: 20130627
  Serious: Yes (Other)
  Sender: FDA-Public Use
  Company Number: US-MERCK-1209USA005735

PATIENT

DRUGS (1)
  1. SAPHRIS [Suspect]
     Dosage: 5 mg, qd
     Route: 060

REACTIONS (6)
  - Feeling of body temperature change [Unknown]
  - Dysarthria [Unknown]
  - Confusional state [Unknown]
  - Headache [Unknown]
  - Dysphemia [Unknown]
  - Panic reaction [Unknown]
